FAERS Safety Report 5512308-7 (Version None)
Quarter: 2007Q4

REPORT INFORMATION
  Report Type: 
  Country: None (occurrence: None)
  Receive Date: 20071112
  Receipt Date: 20071010
  Transmission Date: 20080405
  Serious: No
  Sender: FDA-Public Use
  Company Number: A0686895A

PATIENT
  Age: 43 Year
  Sex: Male

DRUGS (3)
  1. VERAMYST [Suspect]
     Dosage: 27.5MCG TWICE PER DAY
     Route: 045
     Dates: start: 20070926, end: 20071001
  2. ALLEGRA [Concomitant]
  3. FLONASE [Concomitant]

REACTIONS (1)
  - NASAL ULCER [None]
